FAERS Safety Report 8482759-X (Version None)
Quarter: 2012Q3

REPORT INFORMATION
  Report Type: 
  Country: None (occurrence: None)
  Receive Date: 20120702
  Receipt Date: 20120626
  Transmission Date: 20120928
  Serious: Yes (Other)
  Sender: FDA-Public Use
  Company Number: DE-JNJFOC-20111102750

PATIENT
  Sex: Female
  Weight: 70 kg

DRUGS (6)
  1. XARELTO [Suspect]
     Indication: HIP SURGERY
     Route: 048
     Dates: start: 20110325, end: 20110426
  2. METOPROLOL [Concomitant]
     Indication: HYPERTENSION
  3. CEFUROXIME [Concomitant]
     Indication: POST PROCEDURAL INFECTION
     Dates: start: 20110325, end: 20110401
  4. XARELTO [Suspect]
     Indication: THROMBOSIS PROPHYLAXIS
     Route: 048
     Dates: start: 20110325, end: 20110426
  5. ALENDRONATE SODIUM [Concomitant]
     Indication: OSTEOPOROSIS
  6. RAMIPRIL [Concomitant]
     Indication: HYPERTENSION

REACTIONS (4)
  - GAMMA-GLUTAMYLTRANSFERASE INCREASED [None]
  - DYSGEUSIA [None]
  - DECREASED APPETITE [None]
  - NAUSEA [None]
